FAERS Safety Report 21212452 (Version 1)
Quarter: 2022Q3

REPORT INFORMATION
  Report Type: Spontaneous
  Country: US (occurrence: None)
  Receive Date: 20220812
  Receipt Date: 20220812
  Transmission Date: 20221026
  Serious: Yes (Hospitalization)
  Sender: FDA-Public Use
  Company Number: None

PATIENT
  Age: 84 Year
  Sex: Male
  Weight: 69.75 kg

DRUGS (3)
  1. NIVOLUMAB [Suspect]
     Active Substance: NIVOLUMAB
     Indication: Non-small cell lung cancer
     Dosage: OTHER FREQUENCY : EVERY 3 WEEKS;?
     Route: 041
     Dates: start: 20220523, end: 20220613
  2. PACLITAXEL [Suspect]
     Active Substance: PACLITAXEL
  3. CARBOPLATIN [Suspect]
     Active Substance: CARBOPLATIN

REACTIONS (6)
  - Malaise [None]
  - Pain in jaw [None]
  - Neck pain [None]
  - Myalgia [None]
  - Dysphagia [None]
  - Myocarditis [None]

NARRATIVE: CASE EVENT DATE: 20220707
